FAERS Safety Report 5728389-1 (Version None)
Quarter: 2008Q2

REPORT INFORMATION
  Report Type: 
  Country: None (occurrence: None)
  Receive Date: 20080506
  Receipt Date: 20080424
  Transmission Date: 20081010
  Serious: Yes (Hospitalization)
  Sender: FDA-Public Use
  Company Number: FR-BRISTOL-MYERS SQUIBB COMPANY-14171912

PATIENT
  Age: 74 Year
  Sex: Male

DRUGS (7)
  1. FOZITEC TABS [Suspect]
     Indication: HYPERTENSION
     Route: 048
     Dates: end: 20070614
  2. AMLOR [Suspect]
     Indication: HYPERTENSION
     Route: 048
     Dates: end: 20070614
  3. SUFENTANIL CITRATE [Suspect]
     Indication: SPINAL ANAESTHESIA
     Dates: start: 20070615, end: 20070615
  4. BUPIVACAINE [Suspect]
     Indication: SPINAL ANAESTHESIA
     Dates: start: 20070615, end: 20070615
  5. NEOSYNEPHRINE [Suspect]
     Indication: SPINAL ANAESTHESIA
     Dates: start: 20070615, end: 20070615
  6. ELISOR [Concomitant]
     Indication: HYPERCHOLESTEROLAEMIA
     Route: 048
  7. LEVOTHYROXINE SODIUM [Concomitant]
     Indication: HYPOTHYROIDISM
     Route: 048

REACTIONS (7)
  - CHEST PAIN [None]
  - CIRCULATORY COLLAPSE [None]
  - ELECTROCARDIOGRAM QT SHORTENED [None]
  - LOSS OF CONSCIOUSNESS [None]
  - RENAL FAILURE ACUTE [None]
  - TACHYCARDIA [None]
  - VOMITING [None]
